FAERS Safety Report 8735479 (Version 2)
Quarter: 2012Q4

REPORT INFORMATION
  Report Type: 
  Country: IL (occurrence: IL)
  Receive Date: 20120822
  Receipt Date: 20121019
  Transmission Date: 20130627
  Serious: Yes (Hospitalization, Other)
  Sender: FDA-Public Use
  Company Number: IL-ACCORD-014419

PATIENT
  Age: 21 Year
  Sex: Male

DRUGS (3)
  1. PEGFILGRASTIM [Concomitant]
     Dosage: On day 6
     Route: 058
  2. CISPLATIN [Suspect]
     Indication: SEMINOMA
     Dosage: On days 1-5 every 3 weeks
  3. ETOPOSIDE [Suspect]
     Indication: SEMINOMA
     Dosage: On days 1-5 every 3 weeks
     Route: 042

REACTIONS (4)
  - Pseudomonas infection [Recovered/Resolved]
  - Septic shock [Unknown]
  - Neutropenia [Unknown]
  - Off label use [Unknown]
